FAERS Safety Report 24025720 (Version 1)
Quarter: 2024Q2

REPORT INFORMATION
  Report Type: Report from Study
  Country: DK (occurrence: DK)
  Receive Date: 20240628
  Receipt Date: 20240628
  Transmission Date: 20240716
  Serious: No
  Sender: FDA-Public Use
  Company Number: DK-ROCHE-3368029

PATIENT
  Age: 37 Year
  Sex: Female

DRUGS (3)
  1. ALECTINIB [Suspect]
     Active Substance: ALECTINIB
     Indication: Non-small cell lung cancer
     Route: 065
     Dates: start: 20200812
  2. BIOCLAVID [Concomitant]
     Active Substance: AMOXICILLIN\CLAVULANIC ACID
     Dosage: FREQUENCY TEXT:7 DAYS
     Route: 048
  3. CIPROFLOXACIN [Concomitant]
     Active Substance: CIPROFLOXACIN
     Route: 048

REACTIONS (1)
  - Breast abscess [Recovered/Resolved]

NARRATIVE: CASE EVENT DATE: 20230327
